FAERS Safety Report 5905224-X (Version None)
Quarter: 2008Q4

REPORT INFORMATION
  Report Type: 
  Country: None (occurrence: None)
  Receive Date: 20081001
  Receipt Date: 20080922
  Transmission Date: 20090506
  Serious: Yes (Other)
  Sender: FDA-Public Use
  Company Number: IE-PFIZER INC-2008067898

PATIENT
  Sex: Male
  Weight: 70 kg

DRUGS (3)
  1. LIPITOR [Suspect]
     Indication: HYPERLIPIDAEMIA
     Route: 048
     Dates: start: 20071213, end: 20080812
  2. LANSOPRAZOLE [Concomitant]
     Dates: start: 20070701
  3. ACETYLSALICYLIC ACID SRT [Concomitant]
     Dates: start: 20070430

REACTIONS (3)
  - DYSAESTHESIA [None]
  - NEUROPATHY PERIPHERAL [None]
  - PARAESTHESIA [None]
